FAERS Safety Report 12481584 (Version 2)
Quarter: 2016Q2

REPORT INFORMATION
  Report Type: Spontaneous
  Country: IT (occurrence: IT)
  Receive Date: 20160620
  Receipt Date: 20160629
  Transmission Date: 20160815
  Serious: Yes (Death)
  Sender: FDA-Public Use
  Company Number: PHHY2016IT081398

PATIENT
  Age: 82 Year
  Sex: Female

DRUGS (8)
  1. LEVOFLOXACIN. [Suspect]
     Active Substance: LEVOFLOXACIN
     Indication: STAPHYLOCOCCAL SKIN INFECTION
     Dosage: 500 MG, UNK
     Route: 048
     Dates: start: 20150521
  2. FENTANYL. [Interacting]
     Active Substance: FENTANYL
     Indication: PROCEDURAL PAIN
     Dosage: 200 UG, UNK
     Route: 065
     Dates: start: 20150521
  3. LEVOFLOXACIN. [Interacting]
     Active Substance: LEVOFLOXACIN
     Dosage: 125 UNK, UNK
     Route: 048
  4. RIFAMPICIN [Interacting]
     Active Substance: RIFAMPIN
     Indication: STAPHYLOCOCCAL SKIN INFECTION
     Dosage: 300 MG, QD
     Route: 065
  5. VANCOMYCIN [Interacting]
     Active Substance: VANCOMYCIN
     Indication: STAPHYLOCOCCAL SKIN INFECTION
     Dosage: 1 G, UNK
     Route: 065
  6. FENTANYL. [Interacting]
     Active Substance: FENTANYL
     Indication: PAIN IN EXTREMITY
     Dosage: 25 UG/HR, UNK
     Route: 065
     Dates: start: 20150521
  7. VANCOMYCIN [Interacting]
     Active Substance: VANCOMYCIN
     Dosage: 500 MG, UNK
     Route: 065
  8. FENTANYL. [Interacting]
     Active Substance: FENTANYL
     Indication: ANGIOPATHY
     Dosage: 100 UG, UNK
     Route: 065
     Dates: start: 20150521

REACTIONS (5)
  - Generalised non-convulsive epilepsy [Fatal]
  - Drug interaction [Fatal]
  - Pyrexia [Fatal]
  - Prescribed overdose [Fatal]
  - Sepsis [Fatal]

NARRATIVE: CASE EVENT DATE: 20150206
